FAERS Safety Report 21582444 (Version 4)
Quarter: 2023Q1

REPORT INFORMATION
  Report Type: Spontaneous
  Country: US (occurrence: US)
  Receive Date: 20221111
  Receipt Date: 20230124
  Transmission Date: 20230417
  Serious: Yes (Other)
  Sender: FDA-Public Use
  Company Number: US-PFIZER INC-PV202200100714

PATIENT
  Age: 75 Year
  Sex: Female
  Weight: 53.21 kg

DRUGS (6)
  1. IBRANCE [Suspect]
     Active Substance: PALBOCICLIB
     Indication: Breast cancer metastatic
     Dosage: 125MG TABLET, 1 TABLET ONCE DAILY FOR 21 DAYS, THEN 7 DAYS OFF
     Dates: start: 201610, end: 20221214
  2. IBRANCE [Suspect]
     Active Substance: PALBOCICLIB
     Dosage: UNK
     Dates: start: 20160817, end: 20191216
  3. IBRANCE [Suspect]
     Active Substance: PALBOCICLIB
     Dosage: UNK
     Dates: start: 202208
  4. IBRANCE [Suspect]
     Active Substance: PALBOCICLIB
     Dosage: UNK
     Dates: end: 202211
  5. IBRANCE [Suspect]
     Active Substance: PALBOCICLIB
     Dosage: 75 MG, CYCLIC (VARIES Q OTHER WEEK TO 3 WKS ON/1 WEEK OFF)
     Route: 048
  6. IBRANCE [Suspect]
     Active Substance: PALBOCICLIB
     Dosage: 125 MG, CYCLIC (VARIES Q OTHER WEEK TO 3 WKS ON/1 WEEK OFF)
     Route: 048

REACTIONS (2)
  - Gastrointestinal haemorrhage [Unknown]
  - Neoplasm progression [Unknown]
